FAERS Safety Report 5630184-9 (Version None)
Quarter: 2008Q1

REPORT INFORMATION
  Report Type: 
  Country: None (occurrence: None)
  Receive Date: 20080213
  Receipt Date: 20080204
  Transmission Date: 20080703
  Serious: Yes (Death)
  Sender: FDA-Public Use
  Company Number: 2008-00989

PATIENT
  Age: 62 Year
  Sex: Male

DRUGS (5)
  1. FIORINAL [Suspect]
  2. IBUPROFEN [Suspect]
  3. LORATADINE/PSEUDOEPHEDRINE SULFATE (WATSON LABORATORIES)(PSEUDOEPHEDRI [Suspect]
  4. AMOXICILLIN [Suspect]
  5. DEXTROMETHORPHAN HYDROBROMIDE [Suspect]

REACTIONS (1)
  - DEATH [None]
